FAERS Safety Report 17149564 (Version 5)
Quarter: 2020Q1

REPORT INFORMATION
  Report Type: Report from Study
  Country: US (occurrence: US)
  Receive Date: 20191213
  Receipt Date: 20200319
  Transmission Date: 20200409
  Serious: Yes (Death, Hospitalization, Other)
  Sender: FDA-Public Use
  Company Number: US-ACTELION-A-US2019-198305

PATIENT
  Age: 77 Year
  Sex: Female
  Weight: 58.96 kg

DRUGS (4)
  1. ADEMPAS [Concomitant]
     Active Substance: RIOCIGUAT
  2. UPTRAVI [Suspect]
     Active Substance: SELEXIPAG
     Indication: PULMONARY ARTERIAL HYPERTENSION
     Dosage: 1600 MCG, BID
     Route: 048
  3. OPSUMIT [Suspect]
     Active Substance: MACITENTAN
     Indication: PULMONARY ARTERIAL HYPERTENSION
     Dosage: 10 MG, QD
     Route: 048
     Dates: start: 20160419, end: 20191119
  4. DILTIAZEM. [Concomitant]
     Active Substance: DILTIAZEM

REACTIONS (16)
  - Packed red blood cell transfusion [Recovering/Resolving]
  - Right ventricular failure [Unknown]
  - Death [Fatal]
  - Fatigue [Recovering/Resolving]
  - Renal impairment [Unknown]
  - Lower limb fracture [Unknown]
  - Gastric cancer [Unknown]
  - Fall [Recovered/Resolved]
  - Dyspnoea [Recovering/Resolving]
  - Femur fracture [Unknown]
  - Haemoglobin decreased [Unknown]
  - Anaemia [Unknown]
  - Arthropathy [Unknown]
  - Hospitalisation [Unknown]
  - Sinusitis [Unknown]
  - Atrial fibrillation [Unknown]

NARRATIVE: CASE EVENT DATE: 20170301
